FAERS Safety Report 8991261 (Version 7)
Quarter: 2014Q4

REPORT INFORMATION
  Report Type: Report from Study
  Country: CA (occurrence: CA)
  Receive Date: 20121231
  Receipt Date: 20141119
  Transmission Date: 20150529
  Serious: Yes (Other)
  Sender: FDA-Public Use
  Company Number: CA-ROCHE-1173137

PATIENT
  Age: 49 Year
  Sex: Female
  Weight: 64.07 kg

DRUGS (4)
  1. OMALIZUMAB [Suspect]
     Active Substance: OMALIZUMAB
     Route: 058
     Dates: start: 20081030
  2. OMALIZUMAB [Suspect]
     Active Substance: OMALIZUMAB
     Route: 058
     Dates: start: 20081030
  3. OMALIZUMAB [Suspect]
     Active Substance: OMALIZUMAB
     Route: 058
  4. OMALIZUMAB [Suspect]
     Active Substance: OMALIZUMAB
     Indication: ASTHMA
     Dosage: 150 MG, 1/MONTH
     Route: 058
     Dates: start: 20070319

REACTIONS (13)
  - Respiratory tract infection [Recovering/Resolving]
  - Asthma [Recovered/Resolved]
  - Sinusitis [Unknown]
  - Bronchitis [Recovered/Resolved]
  - Upper respiratory tract infection [Unknown]
  - Lung infection [Unknown]
  - Body temperature decreased [Unknown]
  - Hypersensitivity [Not Recovered/Not Resolved]
  - Malaise [Unknown]
  - Peak expiratory flow rate increased [Unknown]
  - Nasopharyngitis [Unknown]
  - Blood pressure increased [Unknown]
  - Pyrexia [Unknown]

NARRATIVE: CASE EVENT DATE: 20120321
